FAERS Safety Report 8138934-7 (Version None)
Quarter: 2012Q1

REPORT INFORMATION
  Report Type: 
  Country: None (occurrence: None)
  Receive Date: 20120215
  Receipt Date: 20120208
  Transmission Date: 20120608
  Serious: Yes (Hospitalization, Other)
  Sender: FDA-Public Use
  Company Number: PL-BRISTOL-MYERS SQUIBB COMPANY-16046153

PATIENT
  Age: 47 Year
  Sex: Female

DRUGS (4)
  1. METHOTREXATE [Suspect]
     Dates: start: 20050323
  2. METHYLPREDNISOLONE [Concomitant]
     Dates: start: 20041129
  3. ABATACEPT [Suspect]
     Indication: RHEUMATOID ARTHRITIS
     Route: 058
     Dates: start: 20090813, end: 20110908
  4. FEBROFEN [Concomitant]
     Dates: start: 20040806

REACTIONS (2)
  - IRON DEFICIENCY ANAEMIA [None]
  - OVARIAN EPITHELIAL CANCER [None]
